FAERS Safety Report 8391412-2 (Version None)
Quarter: 2012Q2

REPORT INFORMATION
  Report Type: 
  Country: None (occurrence: None)
  Receive Date: 20120529
  Receipt Date: 20120517
  Transmission Date: 20120825
  Serious: Yes (Other)
  Sender: FDA-Public Use
  Company Number: US-ASTRAZENECA-2012SE31995

PATIENT
  Age: 39 Year
  Sex: Male

DRUGS (5)
  1. SEROQUEL XR [Suspect]
     Route: 048
  2. SEROQUEL XR [Suspect]
     Dosage: 100-200 MG
     Route: 048
  3. SEROQUEL XR [Suspect]
     Indication: AFFECTIVE DISORDER
     Route: 048
  4. SEROQUEL XR [Suspect]
     Route: 048
  5. VYBRID [Concomitant]
     Indication: MAJOR DEPRESSION

REACTIONS (1)
  - HEMIPARESIS [None]
